FAERS Safety Report 5868776-4 (Version None)
Quarter: 2008Q3

REPORT INFORMATION
  Report Type: 
  Country: None (occurrence: None)
  Receive Date: 20080902
  Receipt Date: 20080902
  Transmission Date: 20090109
  Serious: Yes (Life-Threatening, Hospitalization)
  Sender: FDA-Public Use
  Company Number: None

PATIENT
  Age: 37 Year
  Sex: Male
  Weight: 97.5234 kg

DRUGS (1)
  1. GEODON [Suspect]
     Indication: BIPOLAR DISORDER
     Dosage: 80MG TWICE DAILY PO
     Route: 048
     Dates: start: 20080808, end: 20080820

REACTIONS (32)
  - ANOREXIA [None]
  - BLOOD PRESSURE INCREASED [None]
  - DARK CIRCLES UNDER EYES [None]
  - DIARRHOEA [None]
  - DIZZINESS [None]
  - DYSARTHRIA [None]
  - DYSPNOEA [None]
  - EYE PRURITUS [None]
  - FEAR [None]
  - FEELING ABNORMAL [None]
  - FLAT AFFECT [None]
  - FLIGHT OF IDEAS [None]
  - GAIT DISTURBANCE [None]
  - HALLUCINATION [None]
  - HALLUCINATION, VISUAL [None]
  - HYPOAESTHESIA [None]
  - INFLUENZA LIKE ILLNESS [None]
  - INSOMNIA [None]
  - IRRITABILITY [None]
  - LIBIDO INCREASED [None]
  - MENTAL STATUS CHANGES [None]
  - MIGRAINE [None]
  - NAUSEA [None]
  - OVERDOSE [None]
  - PALPITATIONS [None]
  - PARANOIA [None]
  - PERSONALITY CHANGE [None]
  - PRURITUS [None]
  - RASH [None]
  - THIRST [None]
  - UNEVALUABLE EVENT [None]
  - WHEEZING [None]
